FAERS Safety Report 23984116 (Version 1)
Quarter: 2024Q2

REPORT INFORMATION
  Report Type: Spontaneous
  Country: FR (occurrence: FR)
  Receive Date: 20240618
  Receipt Date: 20240618
  Transmission Date: 20240716
  Serious: Yes (Death, Other)
  Sender: FDA-Public Use
  Company Number: None

PATIENT
  Age: 68 Year
  Sex: Male
  Weight: 80.5 kg

DRUGS (7)
  1. LOVENOX [Suspect]
     Active Substance: ENOXAPARIN SODIUM
     Indication: Ischaemic stroke
     Dosage: 16000 IU QD (8000 IU X2/DAY)
     Route: 058
     Dates: start: 20240527, end: 20240529
  2. LOVENOX [Suspect]
     Active Substance: ENOXAPARIN SODIUM
     Dosage: 16000 IU QD (8000 IU X2/DAY)
     Route: 058
     Dates: start: 20240517, end: 20240518
  3. HEPARIN SODIUM [Suspect]
     Active Substance: HEPARIN SODIUM
     Indication: Ischaemic stroke
     Dosage: 34000IU, TOTAL
     Route: 042
     Dates: start: 20240525, end: 20240525
  4. HEPARIN SODIUM [Suspect]
     Active Substance: HEPARIN SODIUM
     Dosage: 36000IU, QD
     Route: 042
     Dates: start: 20240522, end: 20240524
  5. HEPARIN SODIUM [Suspect]
     Active Substance: HEPARIN SODIUM
     Dosage: 35000IU, TOTAL
     Route: 042
     Dates: start: 20240520, end: 20240520
  6. HEPARIN SODIUM [Suspect]
     Active Substance: HEPARIN SODIUM
     Dosage: 38000IU, TOTAL
     Route: 042
     Dates: start: 20240519, end: 20240519
  7. HEPARIN SODIUM [Suspect]
     Active Substance: HEPARIN SODIUM
     Dosage: 32000IU, TOTAL
     Route: 042
     Dates: start: 20240521, end: 20240521

REACTIONS (2)
  - Thrombocytopenia [Fatal]
  - Condition aggravated [Fatal]

NARRATIVE: CASE EVENT DATE: 20240526
